FAERS Safety Report 10298235 (Version 2)
Quarter: 2014Q3

REPORT INFORMATION
  Report Type: Spontaneous
  Country: BR (occurrence: BR)
  Receive Date: 20140711
  Receipt Date: 20140711
  Transmission Date: 20150326
  Serious: Yes (Other)
  Sender: FDA-Public Use
  Company Number: BR-PFIZER INC-2014183517

PATIENT
  Age: 61 Year
  Sex: Female
  Weight: 72 kg

DRUGS (2)
  1. XALATAN [Suspect]
     Active Substance: LATANOPROST
     Indication: INTRAOCULAR PRESSURE INCREASED
     Dosage: 1.5 UG, (1 DROP IN THE LEFT EYE)
     Route: 047
     Dates: end: 2009
  2. XALATAN [Suspect]
     Active Substance: LATANOPROST
     Indication: CATARACT

REACTIONS (1)
  - Cataract [Unknown]
